FAERS Safety Report 23083701 (Version 4)
Quarter: 2023Q4

REPORT INFORMATION
  Report Type: Report from Study
  Country: US (occurrence: US)
  Receive Date: 20231019
  Receipt Date: 20231206
  Transmission Date: 20240110
  Serious: Yes (Hospitalization)
  Sender: FDA-Public Use
  Company Number: US-Eisai Medical Research-EC-2015-010809

PATIENT
  Age: 63 Year
  Sex: Male
  Weight: 92.07 kg

DRUGS (40)
  1. LENVIMA [Suspect]
     Active Substance: LENVATINIB
     Indication: Thyroid cancer
     Route: 048
     Dates: start: 20150914
  2. LENVIMA [Suspect]
     Active Substance: LENVATINIB
     Indication: Metastases to lung
     Route: 048
     Dates: end: 201608
  3. LENVIMA [Suspect]
     Active Substance: LENVATINIB
     Route: 048
  4. LENVIMA [Suspect]
     Active Substance: LENVATINIB
     Route: 048
     Dates: end: 201710
  5. LENVIMA [Suspect]
     Active Substance: LENVATINIB
     Route: 048
  6. LENVIMA [Suspect]
     Active Substance: LENVATINIB
     Route: 048
     Dates: end: 2019
  7. LENVIMA [Suspect]
     Active Substance: LENVATINIB
     Route: 048
     Dates: start: 2019, end: 2022
  8. LENVIMA [Suspect]
     Active Substance: LENVATINIB
     Route: 048
     Dates: start: 2022
  9. AVAPRO [Suspect]
     Active Substance: IRBESARTAN
     Indication: Product used for unknown indication
     Dosage: DOSE AND FREQUENCY  UNKNOWN
     Route: 048
     Dates: end: 201510
  10. PROMETHAZINE-CODEINE SYRUP [Concomitant]
  11. VENTOLIN [Concomitant]
     Active Substance: ALBUTEROL SULFATE
  12. TAMSULOSIN HYDROCHLORIDE [Concomitant]
     Active Substance: TAMSULOSIN HYDROCHLORIDE
  13. SYNTHROID [Concomitant]
     Active Substance: LEVOTHYROXINE SODIUM
  14. METAXALONE [Concomitant]
     Active Substance: METAXALONE
  15. LIDOCAINE [Concomitant]
     Active Substance: LIDOCAINE
  16. NEXIUM [Concomitant]
     Active Substance: ESOMEPRAZOLE MAGNESIUM
  17. PREDNISONE [Concomitant]
     Active Substance: PREDNISONE
  18. FAMOTIDINE [Concomitant]
     Active Substance: FAMOTIDINE
  19. TOPROL XL [Concomitant]
     Active Substance: METOPROLOL SUCCINATE
  20. LOPERAMIDE [Concomitant]
     Active Substance: LOPERAMIDE
  21. ZOFRAN [Concomitant]
     Active Substance: ONDANSETRON HYDROCHLORIDE
  22. PRAVASTATIN SODIUM [Concomitant]
     Active Substance: PRAVASTATIN SODIUM
  23. IRBESARTAN [Concomitant]
     Active Substance: IRBESARTAN
  24. VIAGRA [Concomitant]
     Active Substance: SILDENAFIL CITRATE
  25. LABETALOL HYDROCHLORIDE [Concomitant]
     Active Substance: LABETALOL HYDROCHLORIDE
  26. AMOXICILLIN [Concomitant]
     Active Substance: AMOXICILLIN
  27. ACETAMINOPHEN\HYDROCODONE [Concomitant]
     Active Substance: ACETAMINOPHEN\HYDROCODONE
  28. VALTREX [Concomitant]
     Active Substance: VALACYCLOVIR HYDROCHLORIDE
  29. FINASTERIDE [Concomitant]
     Active Substance: FINASTERIDE
  30. BENZONATATE [Concomitant]
     Active Substance: BENZONATATE
  31. FLUTICASONE PROPIONATE [Concomitant]
     Active Substance: FLUTICASONE PROPIONATE
  32. SULFAMETHOXAZOLE- TRIME [Concomitant]
  33. AMLODIPINE BESYLATE [Concomitant]
     Active Substance: AMLODIPINE BESYLATE
  34. CLONIDINE HYDROCHLORIDE [Concomitant]
     Active Substance: CLONIDINE HYDROCHLORIDE
  35. ESOMEPRAZOLE MAGNESIUM [Concomitant]
     Active Substance: ESOMEPRAZOLE\ESOMEPRAZOLE MAGNESIUM\ESOMEPRAZOLE MAGNESIUM DIHYDRATE
  36. ONDANSETRON [Concomitant]
     Active Substance: ONDANSETRON
  37. PRIMIDONE [Concomitant]
     Active Substance: PRIMIDONE
  38. BACTRIM [Concomitant]
     Active Substance: SULFAMETHOXAZOLE\TRIMETHOPRIM
  39. MECLIZINE [Concomitant]
     Active Substance: MECLIZINE HYDROCHLORIDE
  40. OMEPRAZOLE [Concomitant]
     Active Substance: OMEPRAZOLE

REACTIONS (34)
  - Lip swelling [Recovered/Resolved]
  - Hypertension [Not Recovered/Not Resolved]
  - Central nervous system lesion [Unknown]
  - Cerebrovascular accident [Not Recovered/Not Resolved]
  - Hypoaesthesia oral [Unknown]
  - Fatigue [Unknown]
  - Tongue blistering [Unknown]
  - Temperature intolerance [Unknown]
  - Tongue coated [Unknown]
  - Nausea [Not Recovered/Not Resolved]
  - Diarrhoea [Unknown]
  - Dysphonia [Unknown]
  - Alopecia [Unknown]
  - Dry skin [Unknown]
  - Pruritus [Unknown]
  - Blood pressure fluctuation [Unknown]
  - Dizziness [Recovered/Resolved]
  - Vomiting [Unknown]
  - Weight decreased [Unknown]
  - Decreased appetite [Unknown]
  - Squamous cell carcinoma of skin [Unknown]
  - Flatulence [Not Recovered/Not Resolved]
  - Pyrexia [Unknown]
  - Ill-defined disorder [Unknown]
  - SARS-CoV-2 test positive [Unknown]
  - Vertigo [Unknown]
  - Malignant neoplasm progression [Unknown]
  - Bowel movement irregularity [Unknown]
  - Viral infection [Unknown]
  - Cough [Unknown]
  - Herpes zoster [Unknown]
  - Headache [Not Recovered/Not Resolved]
  - Influenza like illness [Not Recovered/Not Resolved]
  - Pain [Not Recovered/Not Resolved]

NARRATIVE: CASE EVENT DATE: 20150101
